FAERS Safety Report 8847867 (Version 1)
Quarter: 2012Q4

REPORT INFORMATION
  Report Type: 
  Country: US (occurrence: US)
  Receive Date: 20121018
  Receipt Date: 20121018
  Transmission Date: 20130627
  Serious: Yes (Hospitalization, Disabling, Other)
  Sender: FDA-Public Use
  Company Number: US-009507513-2010SP004869

PATIENT

DRUGS (1)
  1. NUVARING [Suspect]
     Indication: CONTRACEPTION
     Dosage: UNK
     Route: 067
     Dates: start: 2004, end: 200805

REACTIONS (20)
  - Upper limb fracture [Unknown]
  - Cervical dysplasia [Unknown]
  - Cerebrovascular accident [Recovering/Resolving]
  - Pulmonary embolism [Unknown]
  - Hypertension [Not Recovered/Not Resolved]
  - Arthropod bite [Unknown]
  - Gastrooesophageal reflux disease [Recovered/Resolved]
  - Haematuria [Unknown]
  - Blood cholesterol increased [Unknown]
  - Headache [Unknown]
  - Temporomandibular joint syndrome [Unknown]
  - Sinusitis [Unknown]
  - Liver function test abnormal [Unknown]
  - Attention deficit/hyperactivity disorder [Unknown]
  - Hypotension [Unknown]
  - Vitamin D deficiency [Unknown]
  - Pelvic fracture [Unknown]
  - Upper limb fracture [Unknown]
  - Fall [Unknown]
  - Menopause [Unknown]
